FAERS Safety Report 8066397-9 (Version None)
Quarter: 2012Q1

REPORT INFORMATION
  Report Type: 
  Country: None (occurrence: None)
  Receive Date: 20120124
  Receipt Date: 20120124
  Transmission Date: 20120608
  Serious: Yes (Other)
  Sender: FDA-Public Use
  Company Number: None

PATIENT
  Age: 40 Year
  Sex: Female
  Weight: 54.431 kg

DRUGS (1)
  1. NICOTINE [Suspect]
     Indication: NICOTINE DEPENDENCE
     Route: 065

REACTIONS (5)
  - DEVICE TOXICITY [None]
  - PRODUCT TASTE ABNORMAL [None]
  - PRODUCT COUNTERFEIT [None]
  - EXPOSURE TO TOXIC AGENT [None]
  - UNEVALUABLE EVENT [None]
